FAERS Safety Report 9432240 (Version 5)
Quarter: 2013Q4

REPORT INFORMATION
  Report Type: Report from Study
  Country: TR (occurrence: TR)
  Receive Date: 20130731
  Receipt Date: 20131202
  Transmission Date: 20140711
  Serious: Yes (Hospitalization, Other)
  Sender: FDA-Public Use
  Company Number: PHHY2012TR025571

PATIENT
  Age: 61 Year
  Sex: Male
  Weight: 73 kg

DRUGS (3)
  1. TASIGNA [Suspect]
     Indication: CHRONIC MYELOID LEUKAEMIA
     Dosage: 400 MG, BID
     Route: 048
     Dates: start: 20120113
  2. TASIGNA [Suspect]
     Dosage: 400 MG, DAILY
     Route: 048
  3. TASIGNA [Suspect]
     Dosage: UNK
     Route: 048

REACTIONS (7)
  - Appendicitis [Recovered/Resolved]
  - Groin pain [Unknown]
  - Lipase increased [Unknown]
  - Rash erythematous [Unknown]
  - Pruritus [Unknown]
  - Acne [Unknown]
  - Overdose [Unknown]
